FAERS Safety Report 5844924-7 (Version None)
Quarter: 2008Q3

REPORT INFORMATION
  Report Type: 
  Country: None (occurrence: None)
  Receive Date: 20080813
  Receipt Date: 20080813
  Transmission Date: 20090109
  Serious: Yes (Other)
  Sender: FDA-Public Use
  Company Number: None

PATIENT
  Age: 40 Year
  Sex: Female
  Weight: 68.0396 kg

DRUGS (1)
  1. AZITHROMYCIN [Suspect]
     Indication: SINUSITIS
     Dosage: 250MG X 2 ONCE A DAY 1 PO; 250 MG DAILY ON DAYS 2-5 PO
     Route: 048
     Dates: start: 20080730, end: 20080801

REACTIONS (4)
  - ANXIETY [None]
  - DEREALISATION [None]
  - VERTIGO [None]
  - VISUAL IMPAIRMENT [None]
